FAERS Safety Report 14915096 (Version 1)
Quarter: 2018Q2

REPORT INFORMATION
  Report Type: Spontaneous
  Country: US (occurrence: US)
  Receive Date: 20180501
  Receipt Date: 20180501
  Transmission Date: 20180711
  Serious: Yes (Hospitalization)
  Sender: FDA-Public Use
  Company Number: None

PATIENT
  Age: 62 Year
  Sex: Female

DRUGS (3)
  1. IBRANCE [Suspect]
     Active Substance: PALBOCICLIB
     Indication: NEOPLASM MALIGNANT
     Route: 048
  2. LABETALOL [Concomitant]
     Active Substance: LABETALOL\LABETALOL HYDROCHLORIDE
  3. FASLODEX [Concomitant]
     Active Substance: FULVESTRANT

REACTIONS (4)
  - Eye irritation [None]
  - Dry eye [None]
  - Streptococcal infection [None]
  - Condition aggravated [None]

NARRATIVE: CASE EVENT DATE: 20180416
